FAERS Safety Report 24736953 (Version 1)
Quarter: 2024Q4

REPORT INFORMATION
  Report Type: Other
  Country: AU (occurrence: AU)
  Receive Date: 20241216
  Receipt Date: 20241216
  Transmission Date: 20250114
  Serious: Yes (Other)
  Sender: Atnahs Healthcare
  Company Number: AU-ATNAHS-ATNAHS20241200937

PATIENT
  Age: 64 Year
  Sex: Female

DRUGS (1)
  1. NAPROXEN [Suspect]
     Active Substance: NAPROXEN
     Indication: Product used for unknown indication

REACTIONS (5)
  - Anaphylactic reaction [Unknown]
  - Chest discomfort [Unknown]
  - Dizziness [Unknown]
  - Dysphagia [Unknown]
  - Dysphonia [Unknown]
